FAERS Safety Report 17902855 (Version 3)
Quarter: 2022Q2

REPORT INFORMATION
  Report Type: Spontaneous
  Country: FR (occurrence: FR)
  Receive Date: 20200616
  Receipt Date: 20220523
  Transmission Date: 20220721
  Serious: Yes (Death, Congenital Anomaly, Other)
  Sender: FDA-Public Use
  Company Number: None

PATIENT
  Age: 26 Week
  Sex: Female
  Weight: 1.19 kg

DRUGS (17)
  1. NEVIRAPINE [Suspect]
     Active Substance: NEVIRAPINE
     Indication: Foetal exposure during pregnancy
     Dosage: UNK
     Route: 064
  2. NEVIRAPINE [Suspect]
     Active Substance: NEVIRAPINE
     Dosage: UNK (MATERNAL DOSE: 400 MG, 1D)
     Route: 064
     Dates: start: 20050704
  3. EFAVIRENZ [Suspect]
     Active Substance: EFAVIRENZ
     Indication: Foetal exposure during pregnancy
     Dosage: UNK (MATERNAL DOSE: 600 MG QD)
     Route: 064
     Dates: start: 20050523, end: 20050908
  4. KALETRA [Suspect]
     Active Substance: LOPINAVIR\RITONAVIR
     Indication: Foetal exposure during pregnancy
     Dosage: UNK, (MATERNAL DOSE: UNK)
     Route: 064
     Dates: start: 20050908
  5. COMBIVIR [Suspect]
     Active Substance: LAMIVUDINE\ZIDOVUDINE
     Indication: Foetal exposure during pregnancy
     Dosage: UNK (MATERNAL DOSE: 200 MG, QD)
     Route: 064
     Dates: start: 20050908
  6. COMBIVIR [Suspect]
     Active Substance: LAMIVUDINE\ZIDOVUDINE
     Dosage: UNK (MATERNAL DOSE: Q3W)
     Route: 064
  7. VIRAMUNE [Suspect]
     Active Substance: NEVIRAPINE
     Indication: Foetal exposure during pregnancy
     Dosage: UNK (MATERNAL DOSE: 400 MG, QD)
     Route: 064
     Dates: start: 20050620
  8. VIRAMUNE [Suspect]
     Active Substance: NEVIRAPINE
     Dosage: UNK (MATERNAL DOSE: 400 MG, QD)
     Route: 064
     Dates: start: 20050704
  9. SUSTIVA [Suspect]
     Active Substance: EFAVIRENZ
     Indication: Foetal exposure during pregnancy
     Dosage: UNK (MATERNAL DOSE: 600 MG, QD)
     Route: 064
     Dates: start: 20050523, end: 20050908
  10. DIDANOSINE [Suspect]
     Active Substance: DIDANOSINE
     Indication: Foetal exposure during pregnancy
     Dosage: UNK (MATERNAL DOSE: UNK)
     Route: 064
     Dates: start: 20050523, end: 20050908
  11. EMTRIVA [Suspect]
     Active Substance: EMTRICITABINE
     Indication: Foetal exposure during pregnancy
     Dosage: UNK
     Route: 064
     Dates: start: 20050523
  12. EMTRIVA [Suspect]
     Active Substance: EMTRICITABINE
     Dosage: UNK (MATERNAL DOSE: 600 MG, QD)
     Route: 064
     Dates: start: 20050523, end: 20050908
  13. EMTRIVA [Suspect]
     Active Substance: EMTRICITABINE
     Dosage: UNK (MATERNAL DOSE : 200 MG, QD)
     Route: 064
     Dates: start: 20050523
  14. LOPINAVIR\RITONAVIR [Suspect]
     Active Substance: LOPINAVIR\RITONAVIR
     Indication: Foetal exposure during pregnancy
     Dosage: UNK (MOTHER DOSE)
     Route: 064
     Dates: start: 20050908
  15. LOPINAVIR\RITONAVIR [Suspect]
     Active Substance: LOPINAVIR\RITONAVIR
     Dosage: UNK (MATERNAL DOSE: Q3W)
     Route: 064
  16. EMTRICITABINE [Suspect]
     Active Substance: EMTRICITABINE
     Indication: Foetal exposure during pregnancy
     Dosage: UNK (MATERNAL DOSE: 200 MG, QD)
     Route: 064
     Dates: start: 20050523
  17. VIDEX [Suspect]
     Active Substance: DIDANOSINE
     Indication: Foetal exposure during pregnancy
     Dosage: UNK (MATERNAL DOSE: UNK)
     Route: 064
     Dates: start: 20050523, end: 20050908

REACTIONS (11)
  - Spinocerebellar disorder [Fatal]
  - Spina bifida [Fatal]
  - Brain herniation [Fatal]
  - Congenital hydrocephalus [Unknown]
  - Arnold-Chiari malformation [Not Recovered/Not Resolved]
  - Foetal malformation [Not Recovered/Not Resolved]
  - Anencephaly [Unknown]
  - Encephalocele [Unknown]
  - Meningomyelocele [Unknown]
  - Neural tube defect [Unknown]
  - Foetal exposure during pregnancy [Recovered/Resolved]

NARRATIVE: CASE EVENT DATE: 20050813
